FAERS Safety Report 5158710-7 (Version None)
Quarter: 2006Q4

REPORT INFORMATION
  Report Type: 
  Country: None (occurrence: None)
  Receive Date: 20061128
  Receipt Date: 20061122
  Transmission Date: 20070319
  Serious: Yes (Hospitalization)
  Sender: FDA-Public Use
  Company Number: US-GLAXOSMITHKLINE-A0628455A

PATIENT
  Sex: Male

DRUGS (3)
  1. LAMICTAL [Suspect]
     Dosage: 200MG PER DAY
     Route: 048
     Dates: start: 20061025, end: 20061103
  2. LAMISIL [Suspect]
  3. NO CONCURRENT MEDICATION [Concomitant]

REACTIONS (7)
  - DEHYDRATION [None]
  - DRUG PRESCRIBING ERROR [None]
  - HEADACHE [None]
  - MEDICATION ERROR [None]
  - PYREXIA [None]
  - RASH [None]
  - VOMITING [None]
